FAERS Safety Report 14502202 (Version 1)
Quarter: 2018Q1

REPORT INFORMATION
  Report Type: Spontaneous
  Country: US (occurrence: US)
  Receive Date: 20180208
  Receipt Date: 20180208
  Transmission Date: 20180509
  Serious: No
  Sender: FDA-Public Use
  Company Number: US-ELI_LILLY_AND_COMPANY-US201801005945

PATIENT
  Age: 66 Year
  Sex: Female

DRUGS (13)
  1. GABAPENTIN. [Suspect]
     Active Substance: GABAPENTIN
     Dosage: 900 MG, TID
     Route: 065
     Dates: start: 2016
  2. LOSARTAN. [Concomitant]
     Active Substance: LOSARTAN
     Indication: HYPERTENSION
     Dosage: 50 MG, DAILY
     Route: 065
  3. GABAPENTIN. [Suspect]
     Active Substance: GABAPENTIN
     Indication: DIABETIC NEUROPATHY
     Dosage: 100 MG, TID
     Route: 065
     Dates: start: 2016
  4. GABAPENTIN. [Suspect]
     Active Substance: GABAPENTIN
     Indication: SPINAL COLUMN INJURY
     Dosage: 1200 MG, TID
     Route: 065
     Dates: start: 2016
  5. OMEPRAZOLE. [Concomitant]
     Active Substance: OMEPRAZOLE
     Indication: REFLUX GASTRITIS
     Dosage: 20 UG, DAILY
     Route: 065
  6. LANTUS [Concomitant]
     Active Substance: INSULIN GLARGINE
     Indication: DIABETES MELLITUS
     Dosage: 36 U, DAILY
     Route: 065
     Dates: start: 201611
  7. WELLBUTRIN [Concomitant]
     Active Substance: BUPROPION HYDROCHLORIDE
     Indication: ANXIETY
     Dosage: 150 MG, BID
     Route: 065
  8. LYRICA [Concomitant]
     Active Substance: PREGABALIN
     Indication: DIABETIC NEUROPATHY
     Dosage: UNK UNK, UNKNOWN
     Route: 065
     Dates: start: 20180110
  9. HUMULIN R [Suspect]
     Active Substance: INSULIN HUMAN
     Indication: DIABETES MELLITUS
     Dosage: UNK, PRN ON SLIDING SCALE
     Route: 065
     Dates: start: 2010
  10. SIMVASTATIN. [Concomitant]
     Active Substance: SIMVASTATIN
     Indication: BLOOD CHOLESTEROL ABNORMAL
     Dosage: 10 MG, DAILY AT BEDTIME
     Route: 065
  11. ASPIRIN                            /00002701/ [Concomitant]
     Active Substance: ASPIRIN
     Indication: CARDIAC DISORDER
     Dosage: 81 MG, DAILY
     Route: 065
  12. LYRICA [Concomitant]
     Active Substance: PREGABALIN
     Indication: SPINAL COLUMN INJURY
  13. METFORMIN [Concomitant]
     Active Substance: METFORMIN HYDROCHLORIDE
     Indication: DIABETES MELLITUS
     Dosage: 1000 MG, DAILY
     Route: 065

REACTIONS (12)
  - Intervertebral disc protrusion [Recovered/Resolved]
  - Sciatica [Unknown]
  - Intervertebral disc degeneration [Unknown]
  - Oesophageal disorder [Unknown]
  - Malaise [Unknown]
  - Osteoporosis [Not Recovered/Not Resolved]
  - Discomfort [Unknown]
  - Paraesthesia [Unknown]
  - Lumbar spinal stenosis [Not Recovered/Not Resolved]
  - Spinal claudication [Unknown]
  - Facet joint syndrome [Not Recovered/Not Resolved]
  - Pain [Unknown]
